FAERS Safety Report 7618769-1 (Version None)
Quarter: 2011Q3

REPORT INFORMATION
  Report Type: 
  Country: None (occurrence: None)
  Receive Date: 20110718
  Receipt Date: 20081118
  Transmission Date: 20111222
  Serious: Yes (Disabling, Other)
  Sender: FDA-Public Use
  Company Number: US-BAYER-200821368NA

PATIENT
  Age: 72 Year
  Sex: Female
  Weight: 77.9 kg

DRUGS (59)
  1. MAGNEVIST [Suspect]
     Indication: NUCLEAR MAGNETIC RESONANCE IMAGING
  2. CELEBREX [Concomitant]
  3. QUININE SULFATE [Concomitant]
     Indication: MUSCLE SPASMS
     Dosage: 325 MG HS PRN
  4. PROTONIX [Concomitant]
  5. NEXIUM [Concomitant]
     Dosage: 40 MG 1 TAB DAILY
  6. HYDRALAZINE HCL [Concomitant]
  7. FUROSEMIDE [Concomitant]
  8. HYDROCODONE BITARTRATE AND ACETAMINOPHEN [Concomitant]
  9. SIMVASTATIN [Concomitant]
  10. PRILOSEC [Concomitant]
     Dosage: AS OF NOV 2002
  11. LOPRESSOR [Concomitant]
     Indication: ATRIAL FIBRILLATION
     Dosage: DOSE INCREASED TO 50 MG BID (PREVIOUS DOSING UNKNOWN)
     Route: 048
     Dates: start: 20060325
  12. ISOSORBIDE DINITRATE [Concomitant]
  13. ZAROXOLYN [Concomitant]
  14. PHOSLO [Concomitant]
     Dosage: AS EARLY AS NOV 2002
  15. PLAVIX [Concomitant]
  16. COLCHICINE [Concomitant]
  17. DIAZEPAM [Concomitant]
  18. SUDAFED 12 HOUR [Concomitant]
     Indication: HYPOTENSION
     Dosage: 60 MG TAB PRN
  19. NEURONTIN [Concomitant]
     Indication: NEUROPATHY PERIPHERAL
  20. VENOFER [Concomitant]
     Indication: ANAEMIA
  21. MAGNEVIST [Suspect]
     Indication: ANGIOGRAM
     Dates: start: 20050210, end: 20050210
  22. ALLOPURINOL [Concomitant]
  23. LESCOL [Concomitant]
  24. METOPROLOL TARTRATE [Concomitant]
  25. ZEMPLAR [Concomitant]
     Indication: HYPERPARATHYROIDISM SECONDARY
  26. PROVENTIL [Concomitant]
     Dosage: AS OF NOV 2002
  27. VIOXX [Concomitant]
  28. RENAGEL [Concomitant]
     Indication: HYPERPHOSPHATAEMIA
     Dosage: 800 MG (4 TABS THREE TIMES DAILY WITH MEALS)
  29. GLYBURIDE [Concomitant]
     Dosage: 1.25 MG 1 TABLET DAILY
  30. MOTRIN [Concomitant]
     Indication: MUSCULOSKELETAL PAIN
     Dosage: 400 MG PRN
  31. ALBUMIN (HUMAN) [Concomitant]
     Indication: HYPOTENSION
  32. ALBUTEROL SULFATE AUTOHALER [Concomitant]
     Indication: BRONCHITIS
     Dates: start: 20080401
  33. SODIUM THIOSULFATE [Concomitant]
  34. MAGNEVIST [Suspect]
     Dates: start: 20050616, end: 20050616
  35. TAMOXIFEN CITRATE [Concomitant]
     Indication: BREAST CANCER
  36. ROCALTROL [Concomitant]
  37. CARTIA XT [Concomitant]
  38. NEPHROVITE [VIT C,VIT H,B5,B12,B9,B3,B6,B2,B1 HCL] [Concomitant]
  39. ZESTRIL [Concomitant]
  40. LISINOPRIL [Concomitant]
  41. ZYRTEC [Concomitant]
     Indication: HYPERSENSITIVITY
     Dosage: 5 MG 1 TAB PRN
  42. VICODIN [Concomitant]
     Indication: PAIN
  43. ALTEPLASE [Concomitant]
     Indication: COAGULOPATHY
  44. FOLIC ACID [Concomitant]
  45. SENSIPAR [Concomitant]
     Indication: HYPERPARATHYROIDISM
     Dosage: 60 MG 1 TAB DAILY
  46. ZOCOR [Concomitant]
     Indication: HYPERLIPIDAEMIA
     Dosage: 40 MG 1 TAB DAILY
  47. DIGOXIN [Concomitant]
     Dosage: 0.125 MG MWF
  48. TRICOR [Concomitant]
     Indication: HYPERLIPIDAEMIA
     Dosage: 48 MG 1 TAB DAILY
  49. VASOPRESSIN [Concomitant]
     Indication: HYPOTENSION
  50. TRENTAL [Concomitant]
     Indication: MUSCLE ATROPHY
  51. EPOGEN [Concomitant]
     Dosage: SINCE AT LEAST NOV 2001
  52. INFED [Concomitant]
     Indication: IRON DEFICIENCY ANAEMIA
     Dosage: AS OF NOV 2002
  53. COREG [Concomitant]
     Dosage: AS EARLY AS NOV 2002
  54. MIDODRINE HYDROCHLORIDE [Concomitant]
     Indication: HYPOTENSION
     Dosage: 10 MG (1 BEFORE DIALYSIS AND 1 AFTER 2 HRS)
  55. COUMADIN [Concomitant]
     Dosage: 2.5 MG QD
  56. MANNITOL [Concomitant]
     Indication: HYPOTENSION
  57. MICRONASE [Concomitant]
     Indication: DIABETES MELLITUS
  58. FLORINEF [Concomitant]
     Indication: HYPOTENSION
  59. VENTOLIN HFA [Concomitant]
     Dosage: 2 PUFFS Q8H PRN
     Route: 055

REACTIONS (27)
  - JOINT RANGE OF MOTION DECREASED [None]
  - SKIN INDURATION [None]
  - ARTHROPATHY [None]
  - ABASIA [None]
  - IMMOBILE [None]
  - MUSCULAR WEAKNESS [None]
  - MOBILITY DECREASED [None]
  - OEDEMA PERIPHERAL [None]
  - LIMB DISCOMFORT [None]
  - NEPHROGENIC SYSTEMIC FIBROSIS [None]
  - GAIT DISTURBANCE [None]
  - TENDON DISORDER [None]
  - MUSCLE TIGHTNESS [None]
  - WHEELCHAIR USER [None]
  - PAIN [None]
  - HYPOAESTHESIA [None]
  - MUSCULOSKELETAL STIFFNESS [None]
  - ANXIETY [None]
  - PRURITUS GENERALISED [None]
  - SCAR [None]
  - JOINT CONTRACTURE [None]
  - OEDEMA [None]
  - GRIP STRENGTH DECREASED [None]
  - SKIN TIGHTNESS [None]
  - SKIN DISCOLOURATION [None]
  - DRY SKIN [None]
  - RASH PAPULAR [None]
